FAERS Safety Report 4407850-6 (Version None)
Quarter: 2004Q3

REPORT INFORMATION
  Report Type: 
  Country: None (occurrence: None)
  Receive Date: 20040726
  Receipt Date: 20040720
  Transmission Date: 20050211
  Serious: Yes (Hospitalization)
  Sender: FDA-Public Use
  Company Number: FR-GLAXOSMITHKLINE-B0339757A

PATIENT
  Age: 79 Year
  Sex: Male
  Weight: 64 kg

DRUGS (14)
  1. ZOPHREN [Suspect]
     Dosage: 8MG SINGLE DOSE
     Route: 042
     Dates: start: 20040511, end: 20040511
  2. ZANTAC [Suspect]
     Dosage: 50MG SINGLE DOSE
     Route: 042
     Dates: start: 20040511, end: 20040511
  3. POLARAMINE [Suspect]
     Dosage: 5MG SINGLE DOSE
     Route: 042
     Dates: start: 20040511, end: 20040511
  4. TAXOL [Suspect]
     Indication: METASTATIC BRONCHIAL CARCINOMA
     Dosage: 300MG SINGLE DOSE
     Route: 042
     Dates: start: 20040511, end: 20040511
  5. CARBOPLATINE [Suspect]
     Indication: METASTATIC BRONCHIAL CARCINOMA
     Dosage: 310MG SINGLE DOSE
     Route: 042
     Dates: start: 20040511, end: 20040511
  6. SOLU-MEDROL [Suspect]
     Dosage: 120MG SINGLE DOSE
     Route: 042
     Dates: start: 20040511, end: 20040511
  7. ZOPHREN [Concomitant]
     Route: 048
  8. DURAGESIC [Concomitant]
     Route: 065
  9. SEVREDOL [Concomitant]
     Route: 065
  10. MOVICOL [Concomitant]
     Route: 065
  11. PERISTALTINE [Concomitant]
     Route: 065
  12. ZOLOFT [Concomitant]
     Route: 065
  13. IMOVANE [Concomitant]
     Route: 065
  14. TARDYFERON [Concomitant]
     Route: 065

REACTIONS (2)
  - CHILLS [None]
  - HYPERTHERMIA [None]
